FAERS Safety Report 12353624 (Version 1)
Quarter: 2016Q2

REPORT INFORMATION
  Report Type: Report from Study
  Country: US (occurrence: US)
  Receive Date: 20160511
  Receipt Date: 20160511
  Transmission Date: 20160815
  Serious: No
  Sender: FDA-Public Use
  Company Number: US-ALEXION-A201603328

PATIENT
  Age: 72 Year
  Sex: Male
  Weight: 76.19 kg

DRUGS (2)
  1. STRENSIQ [Suspect]
     Active Substance: ASFOTASE ALFA
     Indication: HYPOPHOSPHATASIA
     Dosage: 80 MG, UNK
     Route: 058
     Dates: start: 20160429
  2. STRENSIQ [Suspect]
     Active Substance: ASFOTASE ALFA
     Dosage: 68 MG, UNK
     Route: 058

REACTIONS (1)
  - Dysgeusia [Recovered/Resolved]

NARRATIVE: CASE EVENT DATE: 20160429
